FAERS Safety Report 8990143 (Version 1)
Quarter: 2012Q4

REPORT INFORMATION
  Report Type: 
  Country: US (occurrence: US)
  Receive Date: 20121228
  Receipt Date: 20121228
  Transmission Date: 20130627
  Serious: No
  Sender: FDA-Public Use
  Company Number: US-ASTRAZENECA-2012SE95746

PATIENT
  Age: 63 Year
  Sex: Female
  Weight: 61.2 kg

DRUGS (4)
  1. SEROQUEL XR [Suspect]
     Route: 048
  2. PROVIGIL [Suspect]
     Route: 048
  3. NARDIL [Concomitant]
  4. ROTININOLE [Concomitant]
     Indication: RESTLESS LEGS SYNDROME

REACTIONS (6)
  - Logorrhoea [Unknown]
  - Judgement impaired [Unknown]
  - Hyperaesthesia [Unknown]
  - Rash [Unknown]
  - Neck pain [Unknown]
  - Agitation [Unknown]
